FAERS Safety Report 6684178-5 (Version None)
Quarter: 2010Q2

REPORT INFORMATION
  Report Type: 
  Country: None (occurrence: None)
  Receive Date: 20100416
  Receipt Date: 20100413
  Transmission Date: 20101027
  Serious: Yes (Death, Hospitalization)
  Sender: FDA-Public Use
  Company Number: PHHY2010MX03564

PATIENT
  Age: 63 Year
  Sex: Female

DRUGS (3)
  1. DIOVAN HCT [Suspect]
     Dosage: 1 TABLET (80/12.5 MG) PER DAY
     Route: 048
     Dates: start: 20070801, end: 20091115
  2. HUMALOG [Concomitant]
     Indication: DIABETES MELLITUS
  3. MESTINON [Concomitant]
     Indication: MYASTHENIA GRAVIS

REACTIONS (4)
  - ELECTROLYTE IMBALANCE [None]
  - GASTRITIS [None]
  - RENAL FAILURE [None]
  - TYPE 2 DIABETES MELLITUS [None]
